FAERS Safety Report 11595716 (Version 3)
Quarter: 2016Q2

REPORT INFORMATION
  Report Type: Spontaneous
  Country: US (occurrence: US)
  Receive Date: 20151006
  Receipt Date: 20160425
  Transmission Date: 20160815
  Serious: Yes (Other)
  Sender: FDA-Public Use
  Company Number: US-BAYER-2015-432570

PATIENT
  Age: 19 Year
  Sex: Female

DRUGS (2)
  1. SKYLA [Suspect]
     Active Substance: LEVONORGESTREL
     Indication: CONTRACEPTION
     Dosage: 14 MCG/24HR, CONT
     Route: 015
     Dates: start: 201305, end: 201508
  2. YAZ [Suspect]
     Active Substance: DROSPIRENONE\ETHINYL ESTRADIOL
     Dosage: UNK
     Route: 048

REACTIONS (12)
  - Weight increased [None]
  - Genital haemorrhage [Not Recovered/Not Resolved]
  - Premenstrual cramps [None]
  - Menorrhagia [Recovered/Resolved]
  - Migraine [None]
  - Feeling abnormal [Not Recovered/Not Resolved]
  - Amenorrhoea [Recovered/Resolved]
  - Weight increased [Not Recovered/Not Resolved]
  - Weight loss poor [Not Recovered/Not Resolved]
  - Depressed mood [None]
  - Stress [None]
  - Anxiety [None]

NARRATIVE: CASE EVENT DATE: 2015
